FAERS Safety Report 24932770 (Version 1)
Quarter: 2025Q1

REPORT INFORMATION
  Report Type: Report from Study
  Country: US (occurrence: US)
  Receive Date: 20250205
  Receipt Date: 20250205
  Transmission Date: 20250409
  Serious: No
  Sender: EXELIXIS
  Company Number: US-EXELIXIS-EXL-2024-000754

PATIENT
  Age: 66 Year
  Sex: Male
  Weight: 50.8 kg

DRUGS (13)
  1. CABOMETYX [Suspect]
     Active Substance: CABOZANTINIB S-MALATE
     Indication: Renal cell carcinoma
     Dosage: 20 MG, QD
     Route: 048
     Dates: start: 20240725, end: 20240903
  2. OPDIVO [Concomitant]
     Active Substance: NIVOLUMAB
  3. ACETAMINOPHEN [Concomitant]
     Active Substance: ACETAMINOPHEN
  4. OXYCODONE AND ACETAMINOPHEN [Concomitant]
     Active Substance: ACETAMINOPHEN\OXYCODONE HYDROCHLORIDE
  5. ALBUTEROL [Concomitant]
     Active Substance: ALBUTEROL
  6. BUDESONIDE\FORMOTEROL [Concomitant]
     Active Substance: BUDESONIDE\FORMOTEROL
  7. FINASTERIDE [Concomitant]
     Active Substance: FINASTERIDE
  8. GABAPENTIN [Concomitant]
     Active Substance: GABAPENTIN
  9. OMALIZUMAB [Concomitant]
     Active Substance: OMALIZUMAB
  10. OMEPRAZOLE [Concomitant]
     Active Substance: OMEPRAZOLE
  11. SILDENAFIL [Concomitant]
     Active Substance: SILDENAFIL
  12. TAMSULOSIN [Concomitant]
     Active Substance: TAMSULOSIN
  13. TESTOSTERONE CYPIONATE [Concomitant]
     Active Substance: TESTOSTERONE CYPIONATE

REACTIONS (4)
  - Angular cheilitis [Recovering/Resolving]
  - Tenderness [Recovering/Resolving]
  - Pain [Unknown]
  - Anaemia [Unknown]

NARRATIVE: CASE EVENT DATE: 20240903
